FAERS Safety Report 8055482-3 (Version None)
Quarter: 2011Q4

REPORT INFORMATION
  Report Type: 
  Country: None (occurrence: None)
  Receive Date: 20111213
  Receipt Date: 20111027
  Transmission Date: 20120403
  Serious: No
  Sender: FDA-Public Use
  Company Number: 2011DP051091

PATIENT
  Age: 17 Year
  Sex: Female

DRUGS (2)
  1. SAPHRIS [Suspect]
     Indication: SCHIZOPHRENIA
     Dosage: ;SL
     Route: 060
  2. SAPHRIS [Suspect]
     Indication: BIPOLAR DISORDER
     Dosage: ;SL
     Route: 060

REACTIONS (2)
  - EUPHORIC MOOD [None]
  - DRUG ADMINISTERED TO PATIENT OF INAPPROPRIATE AGE [None]
